FAERS Safety Report 5752568-0 (Version None)
Quarter: 2008Q2

REPORT INFORMATION
  Report Type: 
  Country: None (occurrence: None)
  Receive Date: 20080529
  Receipt Date: 20080527
  Transmission Date: 20081010
  Serious: Yes (Death, Life-Threatening, Hospitalization)
  Sender: FDA-Public Use
  Company Number: PHNU2008DE01302

PATIENT
  Sex: Female

DRUGS (4)
  1. DESFERAL [Suspect]
     Indication: HAEMOSIDEROSIS
     Dosage: 2 G, QD
     Route: 058
     Dates: start: 20080201, end: 20080309
  2. DESFERAL [Suspect]
     Dosage: BOLUS INJECTION
  3. IBUPROFEN [Suspect]
     Indication: SCIATICA
  4. KATADOLON [Concomitant]

REACTIONS (9)
  - ACUTE RESPIRATORY DISTRESS SYNDROME [None]
  - BLOOD CREATININE INCREASED [None]
  - DRUG ADMINISTRATION ERROR [None]
  - HAEMORRHAGE [None]
  - MECHANICAL VENTILATION [None]
  - OXYGEN SATURATION DECREASED [None]
  - PNEUMOTHORAX [None]
  - RENAL FAILURE [None]
  - TRACHEOSTOMY [None]
